FAERS Safety Report 7903261 (Version 3)
Quarter: 2012Q4

REPORT INFORMATION
  Report Type: Report from Study
  Country: US (occurrence: None)
  Receive Date: 20110328
  Receipt Date: 20120921
  Transmission Date: 20130627
  Serious: Yes (Hospitalization)
  Sender: FDA-Public Use
  Company Number: AUR-APL-2011-01036

PATIENT
  Age: 67 Year
  Sex: Female

DRUGS (9)
  1. METFORMIN HYDROCHLORIDE [Suspect]
     Indication: PRODUCT USED FOR UNKNOWN INDICATION
     Dates: start: 20100823
  2. SAXAGLIPTIN [Suspect]
     Indication: TYPE 2 DIABETES MELLITUS
     Dosage: UNKNOWN
     Dates: start: 20100823
  3. PLACEBO [Suspect]
     Indication: TYPE 2 DIABETES MELLITUS
     Dosage: UNKNOWN
  4. BACTRIM [Suspect]
     Indication: PRODUCT USED FOR UNKNOWN INDICATION
     Dosage: (1600 MG), UNKNOWN
     Dates: start: 20101205, end: 20101211
  5. COUMADIN [Suspect]
     Indication: PRODUCT USED FOR UNKNOWN INDICATION
     Dosage: UNKNOWN
  6. INSULIN GLARGINE [Suspect]
     Indication: TYPE 2 DIABETES MELLITUS
  7. INSULIN LISPRO [Suspect]
     Indication: TYPE 2 DIABETES MELLITUS
  8. GLUCAGON [Suspect]
     Indication: TYPE 2 DIABETES MELLITUS
     Dosage: (1 MG), UNKNOWN
  9. ASPIRIN [Concomitant]

REACTIONS (9)
  - Cellulitis [None]
  - Pulmonary oedema [None]
  - International normalised ratio increased [None]
  - Drug interaction [None]
  - Skin ulcer [None]
  - Staphylococcus test positive [None]
  - International normalised ratio fluctuation [None]
  - Ulcer [None]
  - Nausea [None]
